FAERS Safety Report 25152131 (Version 1)
Quarter: 2025Q2

REPORT INFORMATION
  Report Type: Spontaneous
  Country: US (occurrence: US)
  Receive Date: 20250402
  Receipt Date: 20250402
  Transmission Date: 20250716
  Serious: No
  Sender: KYOWA
  Company Number: US-KYOWAKIRIN-2025KK006033

PATIENT

DRUGS (1)
  1. NOURIANZ [Suspect]
     Active Substance: ISTRADEFYLLINE
     Indication: Product used for unknown indication
     Route: 065

REACTIONS (1)
  - Prescription drug used without a prescription [Not Recovered/Not Resolved]

NARRATIVE: CASE EVENT DATE: 20250331
